FAERS Safety Report 7219835-5 (Version None)
Quarter: 2011Q1

REPORT INFORMATION
  Report Type: 
  Country: None (occurrence: None)
  Receive Date: 20110111
  Receipt Date: 20110106
  Transmission Date: 20110831
  Serious: Yes (Hospitalization)
  Sender: FDA-Public Use
  Company Number: FR-ROCHE-740370

PATIENT
  Sex: Female

DRUGS (10)
  1. NEORAL [Concomitant]
     Dosage: DOSE: 25, DOSE TAKEN FEW YEARS AGO
  2. PREVISCAN [Concomitant]
  3. ROACTEMRA [Suspect]
     Route: 065
     Dates: start: 20100301, end: 20100501
  4. MABTHERA [Suspect]
     Dosage: FORM: INFUSION
     Route: 042
     Dates: start: 20101026, end: 20101026
  5. NEXIUM [Concomitant]
  6. AMLOR [Concomitant]
     Indication: CEREBROVASCULAR ACCIDENT
     Dosage: OTHER INDICATION: DEEP VEIN THROMBOSIS
  7. ESIDRIX [Concomitant]
  8. CALCIUM [Concomitant]
  9. CORTANCYL [Concomitant]
  10. PARACETAMOL [Concomitant]

REACTIONS (2)
  - CYTOLYTIC HEPATITIS [None]
  - GAMMA-GLUTAMYLTRANSFERASE INCREASED [None]
